FAERS Safety Report 10177893 (Version 2)
Quarter: 2014Q2

REPORT INFORMATION
  Report Type: Report from Study
  Country: GB (occurrence: GB)
  Receive Date: 20140516
  Receipt Date: 20140516
  Transmission Date: 20141212
  Serious: Yes (Hospitalization)
  Sender: FDA-Public Use
  Company Number: GB-ABBVIE-13P-167-1080011-00

PATIENT
  Age: 49 Year
  Sex: Female
  Weight: 51 kg

DRUGS (9)
  1. HUMIRA [Suspect]
     Indication: RHEUMATOID ARTHRITIS
     Route: 058
     Dates: start: 20051026
  2. METHOTREXATE [Concomitant]
     Indication: RHEUMATOID ARTHRITIS
  3. SULPHASALAZINE [Concomitant]
     Indication: RHEUMATOID ARTHRITIS
  4. HYDROXYCHLOROQUINE [Concomitant]
     Indication: RHEUMATOID ARTHRITIS
  5. PREGBALIN [Concomitant]
     Indication: PRODUCT USED FOR UNKNOWN INDICATION
  6. LANSOPRAZOLE [Concomitant]
     Indication: PRODUCT USED FOR UNKNOWN INDICATION
  7. CALCICHEW D3 FORTE [Concomitant]
     Indication: PRODUCT USED FOR UNKNOWN INDICATION
  8. ALENDRONIC ACID [Concomitant]
     Indication: PRODUCT USED FOR UNKNOWN INDICATION
  9. TRAMADOL [Concomitant]
     Indication: PRODUCT USED FOR UNKNOWN INDICATION

REACTIONS (13)
  - Neutrophil count decreased [Unknown]
  - Abdominal sepsis [Unknown]
  - Diarrhoea [Unknown]
  - Hypophagia [Unknown]
  - Colitis [Unknown]
  - Localised intraabdominal fluid collection [Unknown]
  - Abdominal lymphadenopathy [Unknown]
  - Neck pain [Unknown]
  - Pancytopenia [Recovered/Resolved]
  - Rheumatoid arthritis [Unknown]
  - Hip arthroplasty [Unknown]
  - Neutropenic sepsis [Recovered/Resolved]
  - Anaphylactic reaction [Unknown]
